FAERS Safety Report 14027064 (Version 2)
Quarter: 2017Q4

REPORT INFORMATION
  Report Type: Report from Study
  Country: US (occurrence: BR)
  Receive Date: 20170929
  Receipt Date: 20171005
  Transmission Date: 20180321
  Serious: Yes (Hospitalization)
  Sender: FDA-Public Use
  Company Number: US-SUNOVION-2017SUN004217

PATIENT
  Age: 69 Year
  Sex: Male
  Weight: 83 kg

DRUGS (7)
  1. INDACATEROL AND GLYCOPYRROLATE [Suspect]
     Active Substance: GLYCOPYRROLATE\INDACATEROL MALEATE
     Indication: PRODUCT USED FOR UNKNOWN INDICATION
     Dosage: 1 DF, QD (+ OR - ONE MONTH AGO) (110 INDACATEROL + 50 GLYCOPYRRONIUM BROMIDE UNITS NOT PROVIDED)
     Route: 055
  2. INDACATEROL [Suspect]
     Active Substance: INDACATEROL
     Indication: PRODUCT USED FOR UNKNOWN INDICATION
     Dosage: 1 DF, QD (ENDED + OR - 6 MONTHS AGO)
     Route: 055
  3. GLIFAGE [Concomitant]
     Active Substance: METFORMIN HYDROCHLORIDE
     Dosage: 500 MG, UNK
  4. ADALAT [Concomitant]
     Active Substance: NIFEDIPINE
     Dosage: 60 MG, UNK
  5. INDAPAMIDE. [Concomitant]
     Active Substance: INDAPAMIDE
     Dosage: 1.5 MG, UNK
  6. GLIMEPIRIDE. [Concomitant]
     Active Substance: GLIMEPIRIDE
     Dosage: 4 MG, UNK
  7. TARCEVA [Concomitant]
     Active Substance: ERLOTINIB HYDROCHLORIDE
     Dosage: 150 MG, UNK

REACTIONS (10)
  - Dyspnoea exertional [Not Recovered/Not Resolved]
  - Procedural pain [Unknown]
  - Dyspnoea [Not Recovered/Not Resolved]
  - Respiratory disorder [Unknown]
  - Pleural effusion [Unknown]
  - Dyspnoea [Recovered/Resolved]
  - Sensitivity to weather change [Unknown]
  - Cough [Not Recovered/Not Resolved]
  - Bronchitis [Unknown]
  - Chest pain [Unknown]

NARRATIVE: CASE EVENT DATE: 201708
